FAERS Safety Report 12975456 (Version 2)
Quarter: 2017Q1

REPORT INFORMATION
  Report Type: Spontaneous
  Country: DE (occurrence: DE)
  Receive Date: 20161125
  Receipt Date: 20170106
  Transmission Date: 20170428
  Serious: Yes (Other)
  Sender: FDA-Public Use
  Company Number: DE-NOVOPROD-520465

PATIENT
  Age: 56 Year
  Sex: Male
  Weight: 99.1 kg

DRUGS (3)
  1. NOVORAPID [Suspect]
     Active Substance: INSULIN ASPART
     Indication: TYPE 1 DIABETES MELLITUS
     Dosage: 44 IE, QD
     Route: 058
  2. RANIT [Concomitant]
  3. DELEX [Concomitant]
     Dosage: UNK, TID

REACTIONS (5)
  - Feeling abnormal [Unknown]
  - Limb discomfort [Unknown]
  - Drug intolerance [Unknown]
  - Blood ketone body present [Unknown]
  - Nasopharyngitis [Unknown]

NARRATIVE: CASE EVENT DATE: 20160829
